FAERS Safety Report 6790155-6 (Version None)
Quarter: 2010Q2

REPORT INFORMATION
  Report Type: 
  Country: None (occurrence: None)
  Receive Date: 20100624
  Receipt Date: 20100618
  Transmission Date: 20101027
  Serious: No
  Sender: FDA-Public Use
  Company Number: US-JNJFOC-20100606421

PATIENT

DRUGS (3)
  1. INVEGA SUSTENNA [Suspect]
     Indication: SCHIZOPHRENIA
     Route: 030
  2. DEPAKOTE [Concomitant]
     Route: 048
  3. ANTIPSYCHOTICS [Concomitant]
     Route: 065

REACTIONS (1)
  - AKATHISIA [None]
